FAERS Safety Report 8728260 (Version 2)
Quarter: 2012Q4

REPORT INFORMATION
  Report Type: 
  Country: US (occurrence: US)
  Receive Date: 20120817
  Receipt Date: 20120828
  Transmission Date: 20130627
  Serious: No
  Sender: FDA-Public Use
  Company Number: US-PFIZER INC-2012197336

PATIENT
  Sex: Female

DRUGS (1)
  1. GEODON [Suspect]
     Dosage: UNK

REACTIONS (6)
  - Circumstance or information capable of leading to medication error [Unknown]
  - Malaise [Unknown]
  - Vomiting [Unknown]
  - Insomnia [Unknown]
  - Migraine [Unknown]
  - Drug withdrawal syndrome [Unknown]
